FAERS Safety Report 7686351-6 (Version None)
Quarter: 2011Q3

REPORT INFORMATION
  Report Type: 
  Country: None (occurrence: None)
  Receive Date: 20110816
  Receipt Date: 20110804
  Transmission Date: 20111222
  Serious: Yes (Other)
  Sender: FDA-Public Use
  Company Number: JP-GLAXOSMITHKLINE-B0701792A

PATIENT
  Sex: Female

DRUGS (6)
  1. HALCION [Concomitant]
     Route: 048
  2. VOLTAREN [Concomitant]
     Route: 054
  3. LAC B [Concomitant]
     Dosage: 3G PER DAY
     Route: 048
  4. RISUMIC [Concomitant]
     Dosage: 1IUAX PER DAY
     Route: 048
  5. ZOVIRAX [Suspect]
     Indication: PRODUCT USED FOR UNKNOWN INDICATION
     Dosage: 2000MG PER DAY
     Route: 048
     Dates: start: 20110215, end: 20110219
  6. POLITOSE [Concomitant]
     Route: 048

REACTIONS (2)
  - RESTLESSNESS [None]
  - DELIRIUM [None]
